FAERS Safety Report 6651351-1 (Version None)
Quarter: 2010Q1

REPORT INFORMATION
  Report Type: 
  Country: None (occurrence: None)
  Receive Date: 20100325
  Receipt Date: 20100318
  Transmission Date: 20100710
  Serious: Yes (Other)
  Sender: FDA-Public Use
  Company Number: B0642917A

PATIENT
  Age: 37 Year
  Sex: Male

DRUGS (1)
  1. NICABATE CQ CLEAR 21MG [Suspect]
     Indication: DRUG WITHDRAWAL MAINTENANCE THERAPY
     Dosage: 1PAT PER DAY
     Route: 062
     Dates: start: 20100204

REACTIONS (3)
  - PSYCHOTIC BEHAVIOUR [None]
  - SKIN REACTION [None]
  - SLEEP DISORDER [None]
